FAERS Safety Report 5510496-X (Version None)
Quarter: 2007Q4

REPORT INFORMATION
  Report Type: 
  Country: None (occurrence: None)
  Receive Date: 20071108
  Receipt Date: 20071030
  Transmission Date: 20080405
  Serious: Yes (Other)
  Sender: FDA-Public Use
  Company Number: GB-AMGEN-US251314

PATIENT
  Age: 58 Year
  Sex: Female

DRUGS (11)
  1. ENBREL [Suspect]
     Indication: RHEUMATOID ARTHRITIS
     Route: 058
     Dates: start: 20030415, end: 20070401
  2. DIAZEPAM [Concomitant]
     Dosage: 5MG FREQUENCY UNKNOWN
     Route: 048
  3. FOLIC ACID [Concomitant]
  4. FUROSEMIDE [Concomitant]
     Route: 048
  5. SPIRONOLACTONE [Concomitant]
  6. PANTOPRAZOLE SODIUM [Concomitant]
  7. PARACETAMOL [Concomitant]
     Dosage: UNKNOWN
     Route: 048
  8. PREDNISOLONE [Concomitant]
     Route: 048
  9. SEVREDOL [Concomitant]
     Dosage: 1 DOSE EVERY
  10. AMITRIPTYLINE HCL [Concomitant]
     Route: 048
  11. MS CONTIN [Concomitant]

REACTIONS (10)
  - ABNORMAL DREAMS [None]
  - CONDITION AGGRAVATED [None]
  - EAR INFECTION [None]
  - FACIAL PALSY [None]
  - HYPOKINESIA [None]
  - LOWER RESPIRATORY TRACT INFECTION [None]
  - SENSORY LOSS [None]
  - SOMNOLENCE [None]
  - URINARY TRACT INFECTION [None]
  - VISION BLURRED [None]
